FAERS Safety Report 6993362-2 (Version None)
Quarter: 2010Q3

REPORT INFORMATION
  Report Type: 
  Country: None (occurrence: None)
  Receive Date: 20100917
  Receipt Date: 20091117
  Transmission Date: 20110219
  Serious: Yes (Other)
  Sender: FDA-Public Use
  Company Number: US-ASTRAZENECA-2008UW27386

PATIENT
  Age: 521 Month
  Sex: Female
  Weight: 99.3 kg

DRUGS (5)
  1. SEROQUEL [Suspect]
     Indication: BIPOLAR DISORDER
     Dosage: 100 MG, 200 MG
     Route: 048
     Dates: start: 20050101, end: 20081101
  2. SEROQUEL [Suspect]
     Indication: DEPRESSION
     Dosage: 100 MG, 200 MG
     Route: 048
     Dates: start: 20050101, end: 20081101
  3. HALDOL [Concomitant]
  4. STELAZINE [Concomitant]
  5. ZYPREXA [Concomitant]

REACTIONS (3)
  - DIABETES MELLITUS [None]
  - DIABETIC KETOACIDOSIS [None]
  - TARDIVE DYSKINESIA [None]
